FAERS Safety Report 13473047 (Version 1)
Quarter: 2017Q2

REPORT INFORMATION
  Report Type: Spontaneous
  Country: US (occurrence: US)
  Receive Date: 20170424
  Receipt Date: 20170424
  Transmission Date: 20170830
  Serious: Yes (Life-Threatening, Hospitalization, Other)
  Sender: FDA-Public Use
  Company Number: US-BAYER-2017-071190

PATIENT
  Age: 48 Year
  Sex: Male
  Weight: 72 kg

DRUGS (11)
  1. ATRIPLA [Suspect]
     Active Substance: EFAVIRENZ\EMTRICITABINE\TENOFOVIR DISOPROXIL FUMARATE
     Indication: HIV INFECTION
     Dosage: 1 DF, QD
     Route: 048
     Dates: start: 20121120
  2. LISINOPRIL. [Concomitant]
     Active Substance: LISINOPRIL
     Dosage: UNK
  3. PAIN RELIEF NOS [Concomitant]
     Active Substance: CAMPHOR (SYNTHETIC)\LEVOMENTHOL\MENTHYL SALICYLATE OR CAMPHOR (SYNTHETIC)\MENTHOL\MENTHYL SALICYLATE OR MENTHOL\MENTHYL SALICYLATE
     Dosage: UNK
  4. PECTIN [Concomitant]
     Active Substance: PECTIN
     Dosage: UNK
  5. HYDRODIURIL [Concomitant]
     Active Substance: HYDROCHLOROTHIAZIDE
     Dosage: UNK
  6. BELOC-ZOC COMP [Concomitant]
     Active Substance: HYDROCHLOROTHIAZIDE\METOPROLOL SUCCINATE
  7. COLACE [Concomitant]
     Active Substance: DOCUSATE SODIUM
     Dosage: UNK
  8. ACETYLSALICYLIC ACID (} 100 MG) [Suspect]
     Active Substance: ASPIRIN
     Indication: HEADACHE
     Dosage: 3 DF, UNK
     Route: 065
  9. OMEGA 3 [FISH OIL] [Concomitant]
  10. ACETAMINOPHEN W/HYDROCODONE BITARTRATE [Concomitant]
     Active Substance: ACETAMINOPHEN\HYDROCODONE BITARTRATE
  11. KEPPRA [Concomitant]
     Active Substance: LEVETIRACETAM
     Dosage: UNK

REACTIONS (13)
  - Traumatic intracranial haemorrhage [Recovered/Resolved with Sequelae]
  - Post concussion syndrome [Recovered/Resolved with Sequelae]
  - Retrograde amnesia [Recovered/Resolved]
  - Vision blurred [None]
  - Fall [Recovered/Resolved with Sequelae]
  - Headache [None]
  - Visual impairment [Recovered/Resolved]
  - Dizziness [None]
  - Sinus arrhythmia [None]
  - Subdural haematoma [Recovered/Resolved with Sequelae]
  - Photophobia [None]
  - Bradycardia [None]
  - Headache [None]

NARRATIVE: CASE EVENT DATE: 20161203
